FAERS Safety Report 8255256-4 (Version None)
Quarter: 2012Q2

REPORT INFORMATION
  Report Type: 
  Country: None (occurrence: None)
  Receive Date: 20120403
  Receipt Date: 20120321
  Transmission Date: 20120825
  Serious: Yes (Other)
  Sender: FDA-Public Use
  Company Number: MX-UCBSA-053920

PATIENT
  Age: 68 Year
  Sex: Male
  Weight: 46 kg

DRUGS (1)
  1. NUBRENZA [Suspect]
     Indication: TREMOR
     Route: 062
     Dates: start: 20120208, end: 20120214

REACTIONS (1)
  - DEPRESSION [None]
